FAERS Safety Report 12141007 (Version 2)
Quarter: 2016Q1

REPORT INFORMATION
  Report Type: Spontaneous
  Country: ES (occurrence: ES)
  Receive Date: 20160303
  Receipt Date: 20160311
  Transmission Date: 20160526
  Serious: Yes (Hospitalization)
  Sender: FDA-Public Use
  Company Number: ES-MYLANLABS-2016M1009219

PATIENT

DRUGS (5)
  1. CARBIDOPA/LEVODOPA [Suspect]
     Active Substance: CARBIDOPA\LEVODOPA
     Dosage: 250/25 MG THREE TIMES DAILY STARTED 5 YEARS AGO; LATER, DOSE INCREASED TO 1000 MG PER DAY
     Route: 065
  2. PRAMIPEXOLE. [Suspect]
     Active Substance: PRAMIPEXOLE
     Indication: PARKINSON^S DISEASE
     Dosage: INITIAL DOSAGE NOT STATED; THEN STARTED 2.1MG 4 TIMES DAILY; IMMEDIATE RELEASE
     Route: 065
     Dates: start: 2006, end: 2006
  3. CARBIDOPA/LEVODOPA [Suspect]
     Active Substance: CARBIDOPA\LEVODOPA
     Dosage: 1000MG DAILY STARTED TO IMPROVE MOTOR SYMPTOMS 2 WEEKS AGO
     Route: 065
     Dates: end: 2006
  4. CARBIDOPA/LEVODOPA [Suspect]
     Active Substance: CARBIDOPA\LEVODOPA
     Indication: PARKINSON^S DISEASE
     Dosage: 25/100MG THRICE DAILY STARTED 5 YEARS AGO; LATER; DOSE INCREASED TO 25/250MG TID YEARS AGO
     Route: 065
     Dates: start: 2006
  5. ROPINIROLE. [Suspect]
     Active Substance: ROPINIROLE
     Indication: PARKINSON^S DISEASE
     Dosage: PROLONGED-RELEASE ROPINIROLE
     Route: 065
     Dates: start: 2006, end: 2006

REACTIONS (2)
  - Eosinophilic fasciitis [Recovered/Resolved]
  - Peripheral swelling [Recovered/Resolved]

NARRATIVE: CASE EVENT DATE: 2006
